FAERS Safety Report 22274163 (Version 2)
Quarter: 2025Q2

REPORT INFORMATION
  Report Type: Report from Study
  Country: CA (occurrence: CA)
  Receive Date: 20230502
  Receipt Date: 20250514
  Transmission Date: 20250716
  Serious: Yes (Hospitalization, Other)
  Sender: PFIZER
  Company Number: CA-PFIZER INC-202300170457

PATIENT
  Age: 14 Year
  Sex: Male
  Weight: 40 kg

DRUGS (11)
  1. TOPOTECAN HYDROCHLORIDE [Suspect]
     Active Substance: TOPOTECAN HYDROCHLORIDE
     Indication: Refractory cancer
  2. TOPOTECAN HYDROCHLORIDE [Suspect]
     Active Substance: TOPOTECAN HYDROCHLORIDE
     Indication: Recurrent cancer
  3. TOPOTECAN HYDROCHLORIDE [Suspect]
     Active Substance: TOPOTECAN HYDROCHLORIDE
     Indication: Refractory cancer
     Dosage: 0.75 MG, 1X/DAY
     Route: 042
  4. TOPOTECAN HYDROCHLORIDE [Suspect]
     Active Substance: TOPOTECAN HYDROCHLORIDE
     Indication: Recurrent cancer
  5. CYCLOPHOSPHAMIDE [Suspect]
     Active Substance: CYCLOPHOSPHAMIDE
     Indication: Refractory cancer
     Route: 042
  6. CYCLOPHOSPHAMIDE [Suspect]
     Active Substance: CYCLOPHOSPHAMIDE
     Indication: Recurrent cancer
  7. VENETOCLAX [Suspect]
     Active Substance: VENETOCLAX
     Indication: Refractory cancer
     Dosage: 500 MG, 1X/DAY
     Route: 048
  8. VENETOCLAX [Suspect]
     Active Substance: VENETOCLAX
     Indication: Recurrent cancer
     Dosage: 500 MG, 1X/DAY
     Route: 048
  9. VENETOCLAX [Suspect]
     Active Substance: VENETOCLAX
     Indication: Refractory cancer
     Dosage: 250 MG, 1X/DAY
     Route: 048
  10. VENETOCLAX [Suspect]
     Active Substance: VENETOCLAX
     Indication: Recurrent cancer
  11. FILGRASTIM [Concomitant]
     Active Substance: FILGRASTIM
     Indication: Chemotherapy side effect prophylaxis
     Dosage: 300 UG, 1X/DAY
     Route: 065

REACTIONS (16)
  - Anaemia [Not Recovered/Not Resolved]
  - Decreased appetite [Not Recovered/Not Resolved]
  - Fatigue [Not Recovered/Not Resolved]
  - Febrile neutropenia [Recovered/Resolved]
  - Febrile neutropenia [Not Recovered/Not Resolved]
  - Headache [Not Recovered/Not Resolved]
  - Oropharyngeal pain [Not Recovered/Not Resolved]
  - Platelet count decreased [Not Recovered/Not Resolved]
  - Pyrexia [Not Recovered/Not Resolved]
  - Taste disorder [Not Recovered/Not Resolved]
  - White blood cell count decreased [Not Recovered/Not Resolved]
  - Adrenal insufficiency [Not Recovered/Not Resolved]
  - Blood bilirubin increased [Not Recovered/Not Resolved]
  - Hypoalbuminaemia [Not Recovered/Not Resolved]
  - Hypokalaemia [Not Recovered/Not Resolved]
  - Pancytopenia [Not Recovered/Not Resolved]
